FAERS Safety Report 13517781 (Version 1)
Quarter: 2017Q2

REPORT INFORMATION
  Report Type: Spontaneous
  Country: SE (occurrence: SE)
  Receive Date: 20170505
  Receipt Date: 20170505
  Transmission Date: 20170830
  Serious: Yes (Hospitalization)
  Sender: FDA-Public Use
  Company Number: SE-TEVA-763263ACC

PATIENT
  Age: 53 Year
  Sex: Female

DRUGS (9)
  1. METOPROLOL. [Concomitant]
     Active Substance: METOPROLOL
  2. OXASCAND [Concomitant]
     Active Substance: OXAZEPAM
  3. AMLODIPINE [Concomitant]
     Active Substance: AMLODIPINE BESYLATE
  4. OMEPRAZOLE. [Concomitant]
     Active Substance: OMEPRAZOLE
  5. IMDUR [Concomitant]
     Active Substance: ISOSORBIDE MONONITRATE
  6. CREON [Concomitant]
     Active Substance: PANCRELIPASE AMYLASE\PANCRELIPASE LIPASE\PANCRELIPASE PROTEASE
  7. EZETROL [Concomitant]
     Active Substance: EZETIMIBE
  8. ATACAND [Concomitant]
     Active Substance: CANDESARTAN CILEXETIL
  9. CLINDAMYCIN ACTAVIS [Suspect]
     Active Substance: CLINDAMYCIN
     Indication: TONSILLITIS
     Dosage: 900 MILLIGRAM DAILY;
     Dates: start: 20170220, end: 20170302

REACTIONS (1)
  - Cholecystitis [Recovered/Resolved with Sequelae]

NARRATIVE: CASE EVENT DATE: 201702
